FAERS Safety Report 4370060-5 (Version None)
Quarter: 2004Q2

REPORT INFORMATION
  Report Type: 
  Country: None (occurrence: None)
  Receive Date: 20040527
  Receipt Date: 20040513
  Transmission Date: 20050107
  Serious: Yes (Hospitalization, Other)
  Sender: FDA-Public Use
  Company Number: DE-JNJFOC-20040502897

PATIENT
  Age: 41 Year
  Sex: Female

DRUGS (3)
  1. REMICADE [Suspect]
     Indication: RHEUMATOID ARTHRITIS
     Dosage: 200 MG, INTRAVENOUS
     Route: 042
     Dates: start: 20031208, end: 20040312
  2. AMALFIDINE (ALL OTHER THERAPEUTIC PRODUCTS) [Concomitant]
  3. QUENSOL (ALL OTHER THERAPEUTIC PRODUCTS) [Concomitant]

REACTIONS (6)
  - ANAEMIA [None]
  - BONE CANCER METASTATIC [None]
  - BONE MARROW DISORDER [None]
  - BREAST CANCER [None]
  - HAEMORRHAGE [None]
  - THROMBOCYTOPENIA [None]
